FAERS Safety Report 5290947-9 (Version None)
Quarter: 2007Q2

REPORT INFORMATION
  Report Type: 
  Country: None (occurrence: None)
  Receive Date: 20070409
  Receipt Date: 20070330
  Transmission Date: 20071010
  Serious: Yes (Death, Life-Threatening, Other)
  Sender: FDA-Public Use
  Company Number: FR-PFIZER INC-2007011927

PATIENT
  Sex: Male
  Weight: 70 kg

DRUGS (4)
  1. IRINOTECAN HCL [Suspect]
     Indication: COLORECTAL CANCER METASTATIC
     Route: 042
     Dates: start: 20061226, end: 20070122
  2. FLUOROURACIL [Concomitant]
  3. CALCIUM FOLINATE [Concomitant]
  4. BEVACIZUMAB [Concomitant]
     Route: 042
     Dates: start: 20061226, end: 20070122

REACTIONS (8)
  - APHASIA [None]
  - COLORECTAL CANCER METASTATIC [None]
  - CONDITION AGGRAVATED [None]
  - DEPRESSED LEVEL OF CONSCIOUSNESS [None]
  - FEBRILE BONE MARROW APLASIA [None]
  - FEBRILE NEUTROPENIA [None]
  - INFECTION [None]
  - PLATELET COUNT DECREASED [None]
